FAERS Safety Report 23773892 (Version 1)
Quarter: 2024Q2

REPORT INFORMATION
  Report Type: Spontaneous
  Country: SE (occurrence: SE)
  Receive Date: 20240423
  Receipt Date: 20240423
  Transmission Date: 20240716
  Serious: Yes (Hospitalization)
  Sender: FDA-Public Use
  Company Number: None

PATIENT
  Age: 61 Year
  Sex: Male

DRUGS (4)
  1. SKYRIZI [Suspect]
     Active Substance: RISANKIZUMAB-RZAA
     Indication: Psoriasis
     Dosage: 150 MG VAR 12:E VECKA, DOS: SENARE DOS/150 MG EVERY 12 WEEKS, DOSE: LATER DOSE
     Route: 058
     Dates: start: 20160526
  2. CANDESARTAN [Concomitant]
     Active Substance: CANDESARTAN
     Indication: Product used for unknown indication
     Dosage: 1 TABLETT DAGLIGEN
     Route: 048
     Dates: start: 20230623
  3. ATORVASTATIN [Concomitant]
     Active Substance: ATORVASTATIN
     Indication: Product used for unknown indication
     Dosage: 1 TABLETT DAGLIGEN
     Route: 048
     Dates: start: 20230623
  4. AMLODIPINE [Concomitant]
     Active Substance: AMLODIPINE BESYLATE
     Indication: Product used for unknown indication
     Dosage: 1 TABLETT DAGLIGEN
     Route: 048
     Dates: start: 20230623

REACTIONS (1)
  - Partial seizures [Recovering/Resolving]

NARRATIVE: CASE EVENT DATE: 20240413
